FAERS Safety Report 24745639 (Version 1)
Quarter: 2024Q4

REPORT INFORMATION
  Report Type: Spontaneous
  Country: US (occurrence: US)
  Receive Date: 20241218
  Receipt Date: 20241218
  Transmission Date: 20250115
  Serious: No
  Sender: SANOFI AVENTIS
  Company Number: US-SA-2024SA369516

PATIENT
  Age: 20 Year
  Sex: Male

DRUGS (1)
  1. DUPIXENT [Suspect]
     Active Substance: DUPILUMAB
     Indication: Dermatitis atopic
     Dosage: 600 MG, 1X
     Route: 058
     Dates: start: 20241126, end: 20241126

REACTIONS (6)
  - Dry skin [Not Recovered/Not Resolved]
  - Sleep disorder due to a general medical condition [Unknown]
  - Cough [Unknown]
  - Dizziness [Unknown]
  - Headache [Unknown]
  - Injection site rash [Unknown]

NARRATIVE: CASE EVENT DATE: 20240101
